FAERS Safety Report 12954297 (Version 1)
Quarter: 2016Q4

REPORT INFORMATION
  Report Type: Spontaneous
  Country: US (occurrence: US)
  Receive Date: 20161118
  Receipt Date: 20161118
  Transmission Date: 20170207
  Serious: No
  Sender: FDA-Public Use
  Company Number: US-MYLANLABS-2016M1007264

PATIENT
  Sex: Female

DRUGS (2)
  1. MAPROTILINE [Suspect]
     Active Substance: MAPROTILINE
     Indication: OFF LABEL USE
  2. MAPROTILINE [Suspect]
     Active Substance: MAPROTILINE
     Indication: PALPITATIONS
     Dosage: UNK

REACTIONS (3)
  - Off label use [Recovered/Resolved]
  - Unevaluable event [Not Recovered/Not Resolved]
  - Insomnia [Not Recovered/Not Resolved]
